FAERS Safety Report 7093868-4 (Version None)
Quarter: 2010Q4

REPORT INFORMATION
  Report Type: 
  Country: None (occurrence: None)
  Receive Date: 20101110
  Receipt Date: 20101101
  Transmission Date: 20110411
  Serious: Yes (Death)
  Sender: FDA-Public Use
  Company Number: B0681623A

PATIENT
  Sex: Male
  Weight: 100 kg

DRUGS (7)
  1. ZANAMIVIR [Suspect]
     Indication: H1N1 INFLUENZA
     Route: 042
     Dates: start: 20100915, end: 20100920
  2. TAMIFLU [Concomitant]
     Indication: INFLUENZA
     Dates: start: 20100912, end: 20100915
  3. PANTOPRAZOLE [Concomitant]
     Dates: start: 20100912
  4. CEFTRIAXONE [Concomitant]
     Dates: start: 20100912, end: 20100917
  5. ACYCLOVIR SODIUM [Concomitant]
     Dates: start: 20100912, end: 20100916
  6. HYDROCORTISONE [Concomitant]
     Dates: start: 20100915
  7. ASPIRIN [Concomitant]
     Dates: start: 20100912

REACTIONS (8)
  - CHILLS [None]
  - COUGH [None]
  - DEATH [None]
  - DYSPNOEA [None]
  - MULTI-ORGAN FAILURE [None]
  - NASAL DISORDER [None]
  - OROPHARYNGEAL PAIN [None]
  - PYREXIA [None]
